FAERS Safety Report 5680212-X (Version None)
Quarter: 2008Q1

REPORT INFORMATION
  Report Type: 
  Country: None (occurrence: None)
  Receive Date: 20080326
  Receipt Date: 20080319
  Transmission Date: 20080703
  Serious: Yes (Other)
  Sender: FDA-Public Use
  Company Number: PHEH2008US02977

PATIENT
  Age: 51 Year
  Sex: Male

DRUGS (6)
  1. LOPRESSOR [Suspect]
     Indication: MYOCARDIAL INFARCTION
     Dosage: 25 MG, BID
     Route: 048
     Dates: start: 19990101
  2. CENTRUM SILVER [Concomitant]
  3. CRESTOR [Concomitant]
  4. ASPIRIN [Concomitant]
     Dosage: 81 MG, UNK
  5. AMBIEN [Concomitant]
  6. ALBUTEROL [Concomitant]

REACTIONS (3)
  - ALOPECIA [None]
  - MYOCARDIAL INFARCTION [None]
  - STENT PLACEMENT [None]
